FAERS Safety Report 12281525 (Version 1)
Quarter: 2016Q2

REPORT INFORMATION
  Report Type: Spontaneous
  Country: US (occurrence: None)
  Receive Date: 20160418
  Receipt Date: 20160418
  Transmission Date: 20160815
  Serious: No
  Sender: FDA-Public Use
  Company Number: None

PATIENT
  Age: 89 Year
  Sex: Female

DRUGS (7)
  1. IMATINIB [Suspect]
     Active Substance: IMATINIB
     Indication: CHRONIC MYELOID LEUKAEMIA
     Route: 048
     Dates: start: 20160404
  2. MELOXICAM. [Concomitant]
     Active Substance: MELOXICAM
  3. ZETIA [Concomitant]
     Active Substance: EZETIMIBE
  4. TEKTURNA [Concomitant]
     Active Substance: ALISKIREN HEMIFUMARATE
  5. BENZONATATE. [Concomitant]
     Active Substance: BENZONATATE
  6. TRAMADOL. [Concomitant]
     Active Substance: TRAMADOL
  7. JANUVIA [Concomitant]
     Active Substance: SITAGLIPTIN PHOSPHATE

REACTIONS (1)
  - Medical device site reaction [None]

NARRATIVE: CASE EVENT DATE: 2016
